FAERS Safety Report 25360429 (Version 2)
Quarter: 2025Q2

REPORT INFORMATION
  Report Type: Spontaneous
  Country: FR (occurrence: FR)
  Receive Date: 20250527
  Receipt Date: 20250605
  Transmission Date: 20250716
  Serious: Yes (Death, Life-Threatening, Hospitalization, Other)
  Sender: ALKEM
  Company Number: FR-ALKEM LABORATORIES LIMITED-FR-ALKEM-2025-05216

PATIENT
  Age: 67 Year
  Sex: Male

DRUGS (2)
  1. METFORMIN HYDROCHLORIDE [Suspect]
     Active Substance: METFORMIN HYDROCHLORIDE
     Indication: Type 2 diabetes mellitus
     Route: 065
  2. BIKTARVY [Suspect]
     Active Substance: BICTEGRAVIR SODIUM\EMTRICITABINE\TENOFOVIR ALAFENAMIDE FUMARATE
     Indication: HIV infection
     Route: 065

REACTIONS (15)
  - Poisoning deliberate [Fatal]
  - Multiple organ dysfunction syndrome [Unknown]
  - Acute kidney injury [Unknown]
  - Acute respiratory failure [Unknown]
  - Altered state of consciousness [Unknown]
  - Acute hepatic failure [Unknown]
  - Hepatic cytolysis [Unknown]
  - Hypoxia [Unknown]
  - Hypothermia [Unknown]
  - Intentional overdose [Fatal]
  - Toxicity to various agents [Fatal]
  - Lactic acidosis [Fatal]
  - Agitation [Unknown]
  - Bradypnoea [Unknown]
  - Diarrhoea [Unknown]
